FAERS Safety Report 10008553 (Version 1)
Quarter: 2014Q1

REPORT INFORMATION
  Report Type: Spontaneous
  Country: US (occurrence: US)
  Receive Date: 20140312
  Receipt Date: 20140312
  Transmission Date: 20141002
  Serious: No
  Sender: FDA-Public Use
  Company Number: US-INCYTE CORPORATION-2012IN000172

PATIENT
  Age: 57 Year
  Sex: Female

DRUGS (15)
  1. JAKAFI [Suspect]
     Indication: MYELOFIBROSIS
     Dosage: 20 MG, BID
     Route: 048
     Dates: start: 20120206
  2. POTASSIUM [Concomitant]
     Indication: SUPPLEMENTATION THERAPY
  3. PERCOCET [Concomitant]
  4. VALIUM [Concomitant]
  5. LISINOPRIL [Concomitant]
  6. METOPROLOL [Concomitant]
  7. LASIX [Concomitant]
  8. XANAX [Concomitant]
  9. ASPIRIN [Concomitant]
  10. VITAMIN D [Concomitant]
  11. MAGNESIUM [Concomitant]
     Indication: SUPPLEMENTATION THERAPY
  12. PRILOSEC [Concomitant]
  13. CYMBALTA [Concomitant]
  14. ZOFRAN [Concomitant]
  15. NORTRIPTYLINE [Concomitant]

REACTIONS (8)
  - Malaise [None]
  - Decreased appetite [None]
  - Diarrhoea [None]
  - Hypoaesthesia [None]
  - Vision blurred [None]
  - Insomnia [None]
  - Dizziness [None]
  - Headache [None]
